FAERS Safety Report 9425707 (Version 2)
Quarter: 2013Q3

REPORT INFORMATION
  Report Type: Spontaneous
  Country: US (occurrence: US)
  Receive Date: 20130729
  Receipt Date: 20130807
  Transmission Date: 20140515
  Serious: Yes (Life-Threatening, Hospitalization, Disabling)
  Sender: FDA-Public Use
  Company Number: US-BAXTER-2013BAX029659

PATIENT
  Sex: Male

DRUGS (2)
  1. GAMMAGARD LIQUID [Suspect]
     Indication: IMMUNODEFICIENCY COMMON VARIABLE
     Route: 042
  2. PRIVIGEN [Suspect]
     Indication: IMMUNODEFICIENCY COMMON VARIABLE

REACTIONS (2)
  - Cerebrovascular accident [Recovering/Resolving]
  - General physical health deterioration [Recovering/Resolving]
